FAERS Safety Report 10356696 (Version 1)
Quarter: 2014Q3

REPORT INFORMATION
  Report Type: Spontaneous
  Country: US (occurrence: US)
  Receive Date: 20140801
  Receipt Date: 20140801
  Transmission Date: 20150326
  Serious: Yes (Disabling, Other)
  Sender: FDA-Public Use
  Company Number: US-AMGEN-USASP2014057773

PATIENT
  Age: 53 Year
  Sex: Female
  Weight: 63.49 kg

DRUGS (1)
  1. ENBREL [Suspect]
     Active Substance: ETANERCEPT
     Indication: PSORIASIS
     Dosage: 50 MG, 2 TIMES/WK
     Route: 058

REACTIONS (5)
  - Breast cancer [Recovered/Resolved]
  - Alopecia [Recovering/Resolving]
  - Hypertension [Recovering/Resolving]
  - Injection site pain [Recovering/Resolving]
  - Pain in extremity [Recovering/Resolving]
